FAERS Safety Report 14818142 (Version 3)
Quarter: 2018Q2

REPORT INFORMATION
  Report Type: Spontaneous
  Country: FR (occurrence: FR)
  Receive Date: 20180427
  Receipt Date: 20180529
  Transmission Date: 20180711
  Serious: Yes (Disabling, Other)
  Sender: FDA-Public Use
  Company Number: FR-AXELLIA-001613

PATIENT
  Age: 77 Year
  Sex: Male

DRUGS (1)
  1. VORICONAZOLE. [Suspect]
     Active Substance: VORICONAZOLE
     Indication: BRONCHOPULMONARY ASPERGILLOSIS

REACTIONS (3)
  - Visual field defect [Not Recovered/Not Resolved]
  - Hallucination, visual [Recovered/Resolved]
  - Macular opacity [Recovered/Resolved]
